FAERS Safety Report 8685641 (Version 3)
Quarter: 2012Q4

REPORT INFORMATION
  Report Type: 
  Country: IN (occurrence: IN)
  Receive Date: 20120726
  Receipt Date: 20120907
  Transmission Date: 20130627
  Serious: Yes (Death, Hospitalization)
  Sender: FDA-Public Use
  Company Number: IN-B.I. PHARMACEUTICALS,INC./RIDGEFIELD-2012-CS-01076IG

PATIENT
  Age: 59 Year
  Sex: Male

DRUGS (4)
  1. PRADAXA [Suspect]
     Indication: LEFT VENTRICULAR DYSFUNCTION
     Dosage: 220 mg
     Route: 048
     Dates: start: 20120626, end: 20120721
  2. RAMIPRIL [Concomitant]
  3. ATORVASTATIN [Concomitant]
  4. METOPROLOL [Concomitant]

REACTIONS (1)
  - Cerebrovascular accident [Fatal]
